FAERS Safety Report 15833719 (Version 1)
Quarter: 2019Q1

REPORT INFORMATION
  Report Type: Spontaneous
  Country: TR (occurrence: TR)
  Receive Date: 20190116
  Receipt Date: 20190116
  Transmission Date: 20190417
  Serious: Yes (Other)
  Sender: FDA-Public Use
  Company Number: TR-BAUSCH-BL-2019-001261

PATIENT
  Age: 57 Year
  Sex: Female

DRUGS (3)
  1. BORTEZOMIB. [Interacting]
     Active Substance: BORTEZOMIB
     Indication: PLASMA CELL MYELOMA
     Dosage: CYCLICAL (ON DAYS 1, 8, 15 AND 22 OF THE MONTH)
     Route: 058
  2. CYCLOPHOSPHAMIDE. [Concomitant]
     Active Substance: CYCLOPHOSPHAMIDE
     Indication: PLASMA CELL MYELOMA
     Dosage: CYCLICAL (ON DAYS 1, 8, 15 AND 22 OF THE MONTH)
     Route: 048
  3. DEXAMETHASONE. [Suspect]
     Active Substance: DEXAMETHASONE
     Indication: PLASMA CELL MYELOMA
     Dosage: CYCLICAL (ON DAYS 1, 8, 15 AND 22 OF THE MONTH)
     Route: 048

REACTIONS (2)
  - Mania [Recovered/Resolved]
  - Drug interaction [Unknown]
